FAERS Safety Report 17457316 (Version 1)
Quarter: 2020Q1

REPORT INFORMATION
  Report Type: Spontaneous
  Country: US (occurrence: US)
  Receive Date: 20200225
  Receipt Date: 20200225
  Transmission Date: 20200409
  Serious: No
  Sender: FDA-Public Use
  Company Number: US-PERRIGO-19US005793

PATIENT
  Age: 64 Year
  Sex: Female
  Weight: 95.24 kg

DRUGS (1)
  1. SCOPOLAMINE [Suspect]
     Active Substance: SCOPOLAMINE
     Indication: MOTION SICKNESS
     Dosage: 1 MG, Q24 HOURS PRN
     Route: 062
     Dates: start: 20150130, end: 2015

REACTIONS (5)
  - Dry mouth [Recovered/Resolved]
  - Inappropriate schedule of product administration [Recovered/Resolved]
  - Nausea [Recovered/Resolved]
  - Dry throat [Recovered/Resolved]
  - Dysphonia [Recovered/Resolved]

NARRATIVE: CASE EVENT DATE: 20150130
